FAERS Safety Report 11200423 (Version 1)
Quarter: 2015Q2

REPORT INFORMATION
  Report Type: Report from Study
  Country: JP (occurrence: JP)
  Receive Date: 20150618
  Receipt Date: 20150618
  Transmission Date: 20150821
  Serious: Yes (Hospitalization, Other)
  Sender: FDA-Public Use
  Company Number: JP-009507513-1506JPN007439

PATIENT
  Age: 80 Year
  Sex: Male
  Weight: 65 kg

DRUGS (4)
  1. REBETOL [Suspect]
     Active Substance: RIBAVIRIN
     Indication: HEPATIC CIRRHOSIS
     Dosage: 400 MG, QD
     Route: 048
     Dates: start: 20130212, end: 20130430
  2. REBETOL [Suspect]
     Active Substance: RIBAVIRIN
     Dosage: 400 MG, QD
     Route: 048
     Dates: start: 20131114, end: 20140220
  3. PEGINTRON [Suspect]
     Active Substance: PEGINTERFERON ALFA-2B
     Indication: HEPATIC CIRRHOSIS
     Dosage: 80 MICROGRAM, QW
     Route: 058
     Dates: start: 20130219, end: 20130514
  4. PEGINTRON [Suspect]
     Active Substance: PEGINTERFERON ALFA-2B
     Dosage: 100 MICROGRAM, QW
     Route: 058
     Dates: start: 20131114, end: 20140220

REACTIONS (12)
  - Constipation [Recovering/Resolving]
  - Vomiting [Recovering/Resolving]
  - Varices oesophageal [Unknown]
  - Chronic hepatitis C [Unknown]
  - Rhinitis allergic [Recovering/Resolving]
  - Insomnia [Recovering/Resolving]
  - Portal hypertension [Unknown]
  - Gastric ulcer [Unknown]
  - Pyrexia [Recovering/Resolving]
  - Benign prostatic hyperplasia [Unknown]
  - Oesophageal candidiasis [Recovering/Resolving]
  - Pruritus [Recovered/Resolved]

NARRATIVE: CASE EVENT DATE: 20130302
